FAERS Safety Report 22328257 (Version 1)
Quarter: 2023Q2

REPORT INFORMATION
  Report Type: Spontaneous
  Country: CN (occurrence: CN)
  Receive Date: 20230517
  Receipt Date: 20230517
  Transmission Date: 20230722
  Serious: Yes (Other)
  Sender: FDA-Public Use
  Company Number: CN-ABBVIE-4767535

PATIENT
  Age: 68 Year
  Sex: Male

DRUGS (2)
  1. VENCLEXTA [Suspect]
     Active Substance: VENETOCLAX
     Indication: Leukocytosis
     Dosage: 400 MILLIGRAM
     Route: 048
     Dates: start: 20230408, end: 20230420
  2. DECITABINE [Suspect]
     Active Substance: DECITABINE
     Indication: Acute leukaemia
     Dosage: 32 MILLIGRAM
     Route: 041
     Dates: start: 20230324, end: 20230328

REACTIONS (4)
  - Agranulocytosis [Recovering/Resolving]
  - Off label use [Unknown]
  - Infection [Recovering/Resolving]
  - Full blood count decreased [Unknown]

NARRATIVE: CASE EVENT DATE: 20230408
